FAERS Safety Report 18011966 (Version 2)
Quarter: 2020Q3

REPORT INFORMATION
  Report Type: Spontaneous
  Country: JP (occurrence: JP)
  Receive Date: 20200713
  Receipt Date: 20200716
  Transmission Date: 20201103
  Serious: Yes (Other)
  Sender: FDA-Public Use
  Company Number: JP-TEVA-2020-JP-1800390

PATIENT
  Age: 69 Year
  Sex: Female

DRUGS (7)
  1. EURODIN [Concomitant]
  2. TRERIEF [Concomitant]
     Active Substance: ZONISAMIDE
  3. BUP?4 [Concomitant]
     Active Substance: PROPIVERINE
  4. NEODOPASTON [Concomitant]
     Active Substance: CARBIDOPA\LEVODOPA
  5. AZILECT [Suspect]
     Active Substance: RASAGILINE MESYLATE
     Indication: PARKINSON^S DISEASE
     Route: 048
     Dates: start: 20200511, end: 20200622
  6. ELOBIXIBAT [Concomitant]
     Active Substance: ELOBIXIBAT
  7. STALEVO [Concomitant]
     Active Substance: CARBIDOPA\ENTACAPONE\LEVODOPA

REACTIONS (2)
  - Altered state of consciousness [Unknown]
  - Hypertension [Recovered/Resolved]

NARRATIVE: CASE EVENT DATE: 20200615
